FAERS Safety Report 6127802-8 (Version None)
Quarter: 2009Q1

REPORT INFORMATION
  Report Type: 
  Country: None (occurrence: None)
  Receive Date: 20090323
  Receipt Date: 20090313
  Transmission Date: 20090719
  Serious: Yes (Hospitalization)
  Sender: FDA-Public Use
  Company Number: FR-AVENTIS-200910994FR

PATIENT
  Age: 87 Year
  Sex: Female

DRUGS (11)
  1. LASIX [Suspect]
     Route: 048
     Dates: start: 20081114
  2. ARIXTRA [Suspect]
     Indication: PULMONARY EMBOLISM
     Route: 058
     Dates: start: 20081125, end: 20081128
  3. PREVISCAN                          /00789001/ [Suspect]
     Indication: PULMONARY EMBOLISM
     Route: 048
     Dates: start: 20081126
  4. GLUCOPHAGE [Concomitant]
     Route: 048
  5. AMARYL [Concomitant]
     Route: 048
  6. REPAGLINIDE [Concomitant]
     Indication: DRUG USE FOR UNKNOWN INDICATION
     Route: 048
  7. TEMERIT [Concomitant]
     Indication: DRUG USE FOR UNKNOWN INDICATION
     Route: 048
  8. APROVEL [Concomitant]
     Indication: DRUG USE FOR UNKNOWN INDICATION
     Route: 048
  9. LEVOTHYROXINE SODIUM [Concomitant]
     Indication: DRUG USE FOR UNKNOWN INDICATION
     Route: 048
  10. PYOSTACINE [Concomitant]
     Indication: PRODUCTIVE COUGH
     Route: 048
  11. AMOXICILLIN [Concomitant]
     Dates: start: 20081101, end: 20081101

REACTIONS (1)
  - ACUTE GENERALISED EXANTHEMATOUS PUSTULOSIS [None]
